FAERS Safety Report 17289575 (Version 2)
Quarter: 2020Q1

REPORT INFORMATION
  Report Type: Spontaneous
  Country: CA (occurrence: CA)
  Receive Date: 20200120
  Receipt Date: 20200226
  Transmission Date: 20200409
  Serious: Yes (Life-Threatening)
  Sender: FDA-Public Use
  Company Number: CA-TEVA-2020-CA-1170594

PATIENT
  Age: 54 Year
  Sex: Female
  Weight: 65 kg

DRUGS (1)
  1. HYDROCHLOROTHIAZIDE/VALSARTAN [Suspect]
     Active Substance: HYDROCHLOROTHIAZIDE\VALSARTAN
     Indication: HYPERTENSION
     Dosage: 1 DOSAGE FORMS DAILY;
     Route: 048

REACTIONS (2)
  - Metastases to lung [Not Recovered/Not Resolved]
  - Rectal cancer [Not Recovered/Not Resolved]
